FAERS Safety Report 7597887-0 (Version None)
Quarter: 2011Q3

REPORT INFORMATION
  Report Type: 
  Country: None (occurrence: None)
  Receive Date: 20110708
  Receipt Date: 20110617
  Transmission Date: 20111222
  Serious: No
  Sender: FDA-Public Use
  Company Number: US-B.I. PHARMACEUTICALS,INC./RIDGEFIELD-2011-BP-15772BP

PATIENT
  Sex: Female

DRUGS (5)
  1. HYDRALAZINE HCL [Concomitant]
     Indication: HYPERTENSION
     Dates: start: 20100101
  2. PRADAXA [Suspect]
     Indication: ATRIAL FIBRILLATION
     Dosage: 300 MG
     Route: 048
     Dates: start: 20110501, end: 20110501
  3. FUROSEMIDE [Concomitant]
     Indication: OEDEMA
     Dates: start: 20020101
  4. LISINOPRIL [Concomitant]
     Indication: HYPERTENSION
     Dates: start: 20020101
  5. SYNTHROID [Concomitant]
     Indication: HYPOTHYROIDISM
     Dates: start: 20000101

REACTIONS (1)
  - OESOPHAGEAL SPASM [None]
